FAERS Safety Report 16194764 (Version 6)
Quarter: 2021Q3

REPORT INFORMATION
  Report Type: Report from Study
  Country: JP (occurrence: JP)
  Receive Date: 20190414
  Receipt Date: 20210907
  Transmission Date: 20211014
  Serious: Yes (Hospitalization, Other)
  Sender: FDA-Public Use
  Company Number: JP-ALEXION PHARMACEUTICALS INC-A201903799

PATIENT
  Age: 35 Year
  Sex: Female
  Weight: 58 kg

DRUGS (8)
  1. FENTANYL                           /00174602/ [Concomitant]
     Active Substance: FENTANYL
     Indication: POSTOPERATIVE ANALGESIA
     Dosage: 1 MG, DAILY
     Route: 058
     Dates: start: 20190628, end: 20190630
  2. SOLIRIS [Suspect]
     Active Substance: ECULIZUMAB
     Indication: PAROXYSMAL NOCTURNAL HAEMOGLOBINURIA
     Dosage: UNK
     Route: 042
  3. GLUCOSE [Concomitant]
     Active Substance: DEXTROSE
     Indication: LABOUR INDUCTION
     Dosage: START WITH 12 ML / HR OF OXYTOCIN 1A + GLU 500 ML AND INCREASE EVERY 30 MINUTES
     Route: 041
     Dates: start: 20190627, end: 20190628
  4. SOLIRIS [Suspect]
     Active Substance: ECULIZUMAB
     Dosage: 900 MG, Q2W
     Route: 042
     Dates: start: 201010
  5. HEPARIN SODIUM. [Concomitant]
     Active Substance: HEPARIN SODIUM
     Indication: THROMBOSIS PROPHYLAXIS
     Dosage: 5000 IU, QD
     Route: 041
     Dates: start: 20190629, end: 20190704
  6. FOLIAMIN [Concomitant]
     Active Substance: FOLIC ACID
     Indication: PAROXYSMAL NOCTURNAL HAEMOGLOBINURIA
     Dosage: 5 MG, DAILY
     Route: 065
     Dates: start: 20170223, end: 20190705
  7. WARFARIN [Concomitant]
     Active Substance: WARFARIN
     Indication: THROMBOSIS PROPHYLAXIS
     Route: 048
  8. OXYTOCIN. [Concomitant]
     Active Substance: OXYTOCIN
     Indication: LABOUR INDUCTION
     Dosage: UNK
     Route: 041
     Dates: start: 20190627, end: 20190628

REACTIONS (8)
  - Haemolysis [Recovering/Resolving]
  - Upper respiratory tract inflammation [Recovered/Resolved]
  - Gastroenteritis [Recovered/Resolved]
  - Breast feeding [Unknown]
  - Platelet count decreased [Not Recovered/Not Resolved]
  - Exposure during pregnancy [Unknown]
  - Inappropriate schedule of product administration [Unknown]
  - Nasopharyngitis [Recovering/Resolving]

NARRATIVE: CASE EVENT DATE: 20181026
